FAERS Safety Report 25130980 (Version 2)
Quarter: 2025Q3

REPORT INFORMATION
  Report Type: Spontaneous
  Country: EU (occurrence: EU)
  Receive Date: 20250327
  Receipt Date: 20250729
  Transmission Date: 20251021
  Serious: Yes (Other)
  Sender: TEVA
  Company Number: EU-TEVA-VS-3312320

PATIENT
  Sex: Female

DRUGS (7)
  1. TACROLIMUS [Suspect]
     Active Substance: TACROLIMUS
     Indication: Immunosuppressant drug therapy
     Route: 065
  2. METHYLPREDNISOLONE [Suspect]
     Active Substance: METHYLPREDNISOLONE
     Indication: Allergy prophylaxis
     Route: 065
  3. CLEMASTINE [Suspect]
     Active Substance: CLEMASTINE
     Indication: Allergy prophylaxis
     Route: 065
  4. RITUXIMAB [Suspect]
     Active Substance: RITUXIMAB
     Indication: Evans syndrome
     Route: 042
  5. MYCOPHENOLATE MOFETIL [Suspect]
     Active Substance: MYCOPHENOLATE MOFETIL
     Indication: Immunosuppressant drug therapy
     Route: 065
  6. PREDNISONE [Concomitant]
     Active Substance: PREDNISONE
     Indication: Evans syndrome
     Route: 065
  7. ACETAMINOPHEN [Suspect]
     Active Substance: ACETAMINOPHEN
     Indication: Allergy prophylaxis
     Route: 065

REACTIONS (10)
  - Respiratory tract infection [Unknown]
  - Drug ineffective [Unknown]
  - Eczema [Unknown]
  - Drug hypersensitivity [Recovered/Resolved]
  - Asthma [Unknown]
  - Nausea [Recovered/Resolved]
  - Erythema [Recovered/Resolved]
  - Stridor [Recovered/Resolved]
  - Dyspnoea [Recovered/Resolved]
  - Tachypnoea [Unknown]
